FAERS Safety Report 24777191 (Version 1)
Quarter: 2024Q4

REPORT INFORMATION
  Report Type: Report from Study
  Country: US (occurrence: US)
  Receive Date: 20241226
  Receipt Date: 20241226
  Transmission Date: 20250115
  Serious: Yes (Other)
  Sender: INCYTE
  Company Number: US-INCYTE CORPORATION-2024IN013589

PATIENT

DRUGS (1)
  1. JAKAFI [Suspect]
     Active Substance: RUXOLITINIB
     Indication: Myelofibrosis
     Dosage: 10 MILLIGRAM, BID
     Route: 065

REACTIONS (8)
  - Thrombocytopenia [Unknown]
  - Myelofibrosis [Unknown]
  - Abdominal discomfort [Unknown]
  - Fatigue [Unknown]
  - Early satiety [Unknown]
  - Splenomegaly [Unknown]
  - Anaemia [Unknown]
  - Disease progression [Unknown]
